FAERS Safety Report 9730692 (Version 1)
Quarter: 2013Q4

REPORT INFORMATION
  Report Type: Spontaneous
  Country: US (occurrence: US)
  Receive Date: 20131202
  Receipt Date: 20131202
  Transmission Date: 20140711
  Serious: Yes (Other)
  Sender: FDA-Public Use
  Company Number: US-AMGEN-USASP2013081644

PATIENT
  Age: 39 Year
  Sex: Female

DRUGS (2)
  1. ENBREL [Suspect]
     Indication: PSORIATIC ARTHROPATHY
     Dosage: 50 MG, QWK
     Route: 065
     Dates: start: 20130909, end: 20131104
  2. PREDNISONE [Concomitant]
     Dosage: UNK

REACTIONS (2)
  - Pharyngitis streptococcal [Recovered/Resolved]
  - Injection site reaction [Recovered/Resolved]
